FAERS Safety Report 7360267-7 (Version None)
Quarter: 2011Q1

REPORT INFORMATION
  Report Type: 
  Country: None (occurrence: None)
  Receive Date: 20110318
  Receipt Date: 20110307
  Transmission Date: 20110831
  Serious: Yes (Hospitalization)
  Sender: FDA-Public Use
  Company Number: FR-SOLVAY-00211001918

PATIENT
  Age: 79 Year
  Sex: Female

DRUGS (8)
  1. MOPRAL [Concomitant]
     Indication: PRODUCT USED FOR UNKNOWN INDICATION
     Dosage: DAILY DOSE:  UNKNOWN, 20
     Route: 065
  2. LASIX [Concomitant]
     Indication: PRODUCT USED FOR UNKNOWN INDICATION
     Dosage: DAILY DOSE:  UNKNOWN; 20MG
     Route: 065
  3. DILTIAZEM [Concomitant]
     Indication: PRODUCT USED FOR UNKNOWN INDICATION
     Dosage: DAILY DOSE:  UNKNOWN, 300
     Route: 065
  4. COVERSYL 4 MG [Suspect]
     Indication: PRODUCT USED FOR UNKNOWN INDICATION
     Dosage: DAILY DOSE: 8 MILLIGRAM(S)
     Route: 065
  5. HYPERIUM 1 MG [Concomitant]
     Indication: PRODUCT USED FOR UNKNOWN INDICATION
     Dosage: DAILY DOSE:  UNKNOWN, 1.544 MG OF RILMENDINE DIHYDROGEN PHOSPHATE
     Route: 065
  6. KALEORID [Concomitant]
     Indication: PRODUCT USED FOR UNKNOWN INDICATION
     Dosage: DAILY DOSE:  UNKNOWN
     Route: 065
  7. SEROPRAM [Concomitant]
     Indication: PRODUCT USED FOR UNKNOWN INDICATION
     Dosage: DAILY DOSE:  UNKNOWN
     Route: 065
  8. AMARYL [Suspect]
     Indication: PRODUCT USED FOR UNKNOWN INDICATION
     Dosage: DAILY DOSE: 3 MILLIGRAM(S)
     Route: 048
     Dates: end: 20110112

REACTIONS (7)
  - CONVULSION [None]
  - FALL [None]
  - LOSS OF CONSCIOUSNESS [None]
  - SINUSITIS [None]
  - HEAD INJURY [None]
  - RESPIRATORY ACIDOSIS [None]
  - HYPOGLYCAEMIA [None]
